FAERS Safety Report 8498023 (Version 2)
Quarter: 2012Q4

REPORT INFORMATION
  Report Type: Report from Study
  Country: JP (occurrence: JP)
  Receive Date: 20120406
  Receipt Date: 20121018
  Transmission Date: 20130627
  Serious: Yes (Death)
  Sender: FDA-Public Use
  Company Number: JP-SANOFI-AVENTIS-2012SA023958

PATIENT
  Age: 73 Year
  Sex: Male
  Weight: 49 kg

DRUGS (19)
  1. OXALIPLATIN [Suspect]
     Indication: COLON CANCER
     Route: 041
     Dates: start: 20110902, end: 20110902
  2. OXALIPLATIN [Suspect]
     Indication: COLON CANCER
     Route: 041
     Dates: start: 20110916, end: 20110916
  3. OXALIPLATIN [Suspect]
     Indication: COLON CANCER
     Route: 041
     Dates: start: 20110930, end: 20110930
  4. OXALIPLATIN [Suspect]
     Indication: COLON CANCER
     Route: 041
     Dates: start: 20111028, end: 20111028
  5. OXALIPLATIN [Suspect]
     Indication: COLON CANCER
     Route: 041
     Dates: start: 20111111, end: 20111111
  6. OXALIPLATIN [Suspect]
     Indication: COLON CANCER
     Route: 041
     Dates: start: 20111125, end: 20111125
  7. OXALIPLATIN [Suspect]
     Indication: COLON CANCER
     Route: 041
     Dates: start: 20111209, end: 20111209
  8. OXALIPLATIN [Suspect]
     Indication: COLON CANCER
     Route: 041
     Dates: start: 20111226, end: 20111226
  9. OXALIPLATIN [Suspect]
     Indication: COLON CANCER
     Route: 041
     Dates: start: 20120110, end: 20120110
  10. OXALIPLATIN [Suspect]
     Indication: COLON CANCER
     Route: 041
     Dates: start: 20120124, end: 20120124
  11. CALCIUM LEVOFOLINATE [Concomitant]
     Dates: start: 20110902, end: 20120125
  12. 5-FU [Concomitant]
     Dates: start: 20110902, end: 20120125
  13. SOLU-MEDROL [Concomitant]
     Dates: start: 20110902, end: 20110902
  14. GRANISETRON [Concomitant]
     Dates: start: 20110902, end: 20110902
  15. ALOXI [Concomitant]
     Dates: start: 20110916, end: 20111226
  16. DEXAMETHASONE [Concomitant]
     Dates: start: 20110916, end: 20111028
  17. FAMOTIDINE [Concomitant]
     Dates: start: 20110916, end: 20120124
  18. LYRICA [Concomitant]
  19. DEXALTIN [Concomitant]
     Dosage: form: ointment, cream

REACTIONS (5)
  - Death [Fatal]
  - Neuropathy peripheral [Unknown]
  - Nausea [Recovered/Resolved]
  - Stomatitis [Unknown]
  - Decreased appetite [Unknown]
